FAERS Safety Report 16849062 (Version 1)
Quarter: 2019Q3

REPORT INFORMATION
  Report Type: Spontaneous
  Country: DE (occurrence: DE)
  Receive Date: 20190925
  Receipt Date: 20190925
  Transmission Date: 20191005
  Serious: Yes (Hospitalization, Other)
  Sender: FDA-Public Use
  Company Number: DE-DRREDDYS-GER/GER/19/0114312

PATIENT
  Age: 42 Year
  Sex: Male
  Weight: 106 kg

DRUGS (1)
  1. IBUPROFEN. [Suspect]
     Active Substance: IBUPROFEN
     Indication: TOOTHACHE
     Dosage: 600 MG UP TO 4 TIMES A DAY (600 MG BIS ZU 4 MAL AM TAG).
     Route: 048
     Dates: end: 20190807

REACTIONS (2)
  - Jaundice [Unknown]
  - Hepatitis toxic [Recovered/Resolved]

NARRATIVE: CASE EVENT DATE: 20190807
